FAERS Safety Report 19195010 (Version 1)
Quarter: 2021Q2

REPORT INFORMATION
  Report Type: Spontaneous
  Country: IN (occurrence: IN)
  Receive Date: 20210429
  Receipt Date: 20210429
  Transmission Date: 20210717
  Serious: Yes (Other)
  Sender: FDA-Public Use
  Company Number: IN-MYLANLABS-2021M1025444

PATIENT
  Age: 67 Year
  Sex: Male
  Weight: 48 kg

DRUGS (6)
  1. INSULIN ISOPHANE PROTAMINE SUSPENSION [Concomitant]
     Indication: TYPE 2 DIABETES MELLITUS
     Dosage: 45U IN THE MORNING...
     Route: 065
  2. GLIMEPIRIDE. [Concomitant]
     Active Substance: GLIMEPIRIDE
     Indication: TYPE 2 DIABETES MELLITUS
     Dosage: 1 MILLIGRAM, BID
     Route: 065
  3. INSULIN REGULAR                    /01223401/ [Concomitant]
     Indication: TYPE 2 DIABETES MELLITUS
     Dosage: 140U IN THE MORNING...
     Route: 065
  4. METHOTREXATE. [Suspect]
     Active Substance: METHOTREXATE
     Indication: PSORIASIS
     Dosage: FOR 12 YEARS
     Route: 065
  5. METHOTREXATE. [Suspect]
     Active Substance: METHOTREXATE
     Indication: PSORIATIC ARTHROPATHY
  6. METFORMIN [Concomitant]
     Active Substance: METFORMIN HYDROCHLORIDE
     Indication: TYPE 2 DIABETES MELLITUS
     Dosage: 500 MILLIGRAM
     Route: 065

REACTIONS (2)
  - Portal hypertension [Unknown]
  - Liver disorder [Recovering/Resolving]
